FAERS Safety Report 25537030 (Version 1)
Quarter: 2025Q3

REPORT INFORMATION
  Report Type: Spontaneous
  Country: EU (occurrence: EU)
  Receive Date: 20250710
  Receipt Date: 20250710
  Transmission Date: 20251020
  Serious: Yes (Hospitalization, Other)
  Sender: Kenvue
  Company Number: None

PATIENT

DRUGS (4)
  1. FAMOTIDINE [Suspect]
     Active Substance: FAMOTIDINE
     Indication: Dyspepsia
     Dosage: 20 MILLIGRAM, ONCE A DAY (24 H) (20MG 1-0-0)
     Route: 048
     Dates: start: 20250408, end: 20250608
  2. AMOXICILLIN [Suspect]
     Active Substance: AMOXICILLIN
     Indication: Helicobacter gastritis
     Dosage: 1 GRAM, TWICE A DAY (12H) (1000 MG 1-0-1)
     Route: 048
     Dates: start: 20250430, end: 20250514
  3. METRONIDAZOLE [Suspect]
     Active Substance: METRONIDAZOLE
     Indication: Helicobacter gastritis
     Dosage: 250 MILLIGRAM, TWICE A DAY (250 MG 2-0-2)
     Route: 048
     Dates: start: 20250430, end: 20250514
  4. CLARITHROMYCIN [Suspect]
     Active Substance: CLARITHROMYCIN
     Indication: Helicobacter gastritis
     Dosage: 500 MILLIGRAM, TWICE A DAY (500MG 1-0-1)
     Route: 048
     Dates: start: 20250430, end: 20250514

REACTIONS (1)
  - Mixed liver injury [Recovering/Resolving]

NARRATIVE: CASE EVENT DATE: 20250601
